FAERS Safety Report 17407662 (Version 1)
Quarter: 2020Q1

REPORT INFORMATION
  Report Type: Spontaneous
  Country: US (occurrence: US)
  Receive Date: 20200212
  Receipt Date: 20200212
  Transmission Date: 20200409
  Serious: Yes (Life-Threatening, Hospitalization, Other)
  Sender: FDA-Public Use
  Company Number: US-SCIEGEN PHARMACEUTICALS INC-2020SCILIT00037

PATIENT
  Sex: Female

DRUGS (11)
  1. NALOXONE [Interacting]
     Active Substance: NALOXONE
  2. LORAZEPAM. [Interacting]
     Active Substance: LORAZEPAM
  3. BUPROPION HYDROCHLORIDE. [Suspect]
     Active Substance: BUPROPION HYDROCHLORIDE
  4. MIDAZOLAM HYDROCHLORIDE. [Interacting]
     Active Substance: MIDAZOLAM HYDROCHLORIDE
  5. SODIUM BICARBONATE 8.4% [Interacting]
     Active Substance: SODIUM BICARBONATE
  6. NORMAL SALINE [Interacting]
     Active Substance: SODIUM CHLORIDE
  7. POLYETHYLENE GLYCOL 3350. [Interacting]
     Active Substance: POLYETHYLENE GLYCOL 3350
  8. FENTANYL. [Interacting]
     Active Substance: FENTANYL
  9. NOREPINEPHRINE (NE) INFUSION [Interacting]
     Active Substance: NOREPINEPHRINE
  10. SERTRALINE [Concomitant]
     Active Substance: SERTRALINE HYDROCHLORIDE
  11. MAGNESIUM SULFATE. [Interacting]
     Active Substance: MAGNESIUM SULFATE

REACTIONS (10)
  - Overdose [None]
  - Electrocardiogram QT prolonged [Recovered/Resolved]
  - Encephalopathy [Recovered/Resolved]
  - Sinus tachycardia [Recovered/Resolved]
  - Ventricular extrasystoles [Recovered/Resolved]
  - Ileus [Recovered/Resolved]
  - Generalised tonic-clonic seizure [Recovered/Resolved]
  - Electrocardiogram QRS complex prolonged [Recovered/Resolved]
  - Cardiogenic shock [Recovered/Resolved]
  - Hypoxia [Unknown]
